FAERS Safety Report 9026626 (Version 1)
Quarter: 2013Q1

REPORT INFORMATION
  Report Type: Spontaneous
  Country: US (occurrence: None)
  Receive Date: 20130114
  Receipt Date: 20130114
  Transmission Date: 20140127
  Serious: No
  Sender: FDA-Public Use
  Company Number: None

PATIENT
  Sex: Female
  Weight: 90.72 kg

DRUGS (2)
  1. VERAPAMIL [Suspect]
     Indication: HYPERTENSION
  2. SIMVASTATIN [Suspect]
     Indication: BLOOD CHOLESTEROL

REACTIONS (2)
  - Insomnia [None]
  - Pain in extremity [None]
